FAERS Safety Report 9720750 (Version 1)
Quarter: 2013Q4

REPORT INFORMATION
  Report Type: Report from Study
  Country: NL (occurrence: NL)
  Receive Date: 20131129
  Receipt Date: 20131129
  Transmission Date: 20140711
  Serious: Yes (Other)
  Sender: FDA-Public Use
  Company Number: PHHY2013NL137486

PATIENT
  Age: 80 Year
  Sex: Female

DRUGS (4)
  1. ZOMETA [Suspect]
     Indication: BREAST CANCER METASTATIC
     Dosage: 4 MG PER 100 ML ONCE PER 4 WEEKS
     Route: 042
  2. ZOMETA [Suspect]
     Dosage: 4 MG PER 100 ML ONCE PER 4 WEEKS
     Route: 042
     Dates: start: 20130709
  3. ZOMETA [Suspect]
     Dosage: 4 MG PER 100 ML ONCE PER 4 WEEKS
     Route: 042
     Dates: start: 20131029
  4. ZOMETA [Suspect]
     Dosage: 4 MG PER 100 ML ONCE PER 4 WEEKS
     Route: 042
     Dates: start: 20131126

REACTIONS (2)
  - Rib fracture [Recovering/Resolving]
  - Musculoskeletal chest pain [Recovering/Resolving]
